FAERS Safety Report 6891426-5 (Version None)
Quarter: 2010Q3

REPORT INFORMATION
  Report Type: 
  Country: None (occurrence: None)
  Receive Date: 20100731
  Receipt Date: 20070816
  Transmission Date: 20110219
  Serious: Yes (Death)
  Sender: FDA-Public Use
  Company Number: US-PFIZER INC-2007048419

PATIENT

DRUGS (1)
  1. IRINOTECAN HCL [Suspect]

REACTIONS (3)
  - COLORECTAL CANCER [None]
  - DIARRHOEA [None]
  - DISEASE PROGRESSION [None]
